FAERS Safety Report 5882276-7 (Version None)
Quarter: 2008Q3

REPORT INFORMATION
  Report Type: 
  Country: None (occurrence: None)
  Receive Date: 20080912
  Receipt Date: 20080728
  Transmission Date: 20090109
  Serious: No
  Sender: FDA-Public Use
  Company Number: US-ABBOTT-08P-163-0466553-00

PATIENT
  Sex: Female
  Weight: 74.91 kg

DRUGS (3)
  1. HUMIRA [Suspect]
     Indication: CROHN'S DISEASE
     Dosage: 160 MG, DAY 1
     Route: 058
     Dates: start: 20080717, end: 20080717
  2. HUMIRA [Suspect]
     Route: 058
  3. HUMIRA [Suspect]

REACTIONS (3)
  - HEADACHE [None]
  - INJECTION SITE RASH [None]
  - INJECTION SITE WARMTH [None]
